FAERS Safety Report 16978625 (Version 1)
Quarter: 2019Q4

REPORT INFORMATION
  Report Type: Spontaneous
  Country: US (occurrence: US)
  Receive Date: 20190916
  Receipt Date: 20190916
  Transmission Date: 20200122
  Serious: Yes (Hospitalization)
  Sender: FDA-Public Use
  Company Number: None

PATIENT
  Age: 17 Year
  Sex: Female
  Weight: 65.4 kg

DRUGS (5)
  1. METHOTREXATE. [Suspect]
     Active Substance: METHOTREXATE
     Dates: end: 20190812
  2. CYTARABINE. [Suspect]
     Active Substance: CYTARABINE
     Dates: end: 20190821
  3. DEXAMETHASONE. [Suspect]
     Active Substance: DEXAMETHASONE
     Dates: end: 20190816
  4. VINCRISTINE SULFATE. [Suspect]
     Active Substance: VINCRISTINE SULFATE
     Dates: end: 20190812
  5. ONCASPAR [Suspect]
     Active Substance: PEGASPARGASE
     Dates: end: 20190821

REACTIONS (10)
  - Abdominal pain [None]
  - Abdominal distension [None]
  - White blood cell count increased [None]
  - Pyrexia [None]
  - Occult blood positive [None]
  - Diarrhoea haemorrhagic [None]
  - Fluid overload [None]
  - Colitis [None]
  - Respiratory failure [None]
  - Blood potassium decreased [None]

NARRATIVE: CASE EVENT DATE: 20190910
